FAERS Safety Report 20651014 (Version 2)
Quarter: 2022Q4

REPORT INFORMATION
  Report Type: Report from Study
  Country: US (occurrence: US)
  Receive Date: 20220329
  Receipt Date: 20221027
  Transmission Date: 20230112
  Serious: Yes (Hospitalization)
  Sender: FDA-Public Use
  Company Number: US-Vifor (International) Inc.-VIT-2020-05153

PATIENT
  Age: 43 Year
  Sex: Female
  Weight: 72.640 kg

DRUGS (6)
  1. VELTASSA [Suspect]
     Active Substance: PATIROMER
     Indication: Hyperkalaemia
     Route: 048
     Dates: start: 202003
  2. VELTASSA [Suspect]
     Active Substance: PATIROMER
     Route: 048
     Dates: start: 2018
  3. VELTASSA [Suspect]
     Active Substance: PATIROMER
     Route: 048
     Dates: end: 202208
  4. INSULIN NOS [Concomitant]
     Active Substance: INSULIN NOS
     Indication: Type 1 diabetes mellitus
  5. MYFORTIC [Concomitant]
     Active Substance: MYCOPHENOLATE SODIUM
     Indication: Immunosuppression
  6. TACROLIMUS [Concomitant]
     Active Substance: TACROLIMUS
     Indication: Immunosuppression

REACTIONS (8)
  - Clostridium difficile infection [Recovered/Resolved]
  - Diabetic gastroparesis [Recovered/Resolved]
  - Acute kidney injury [Recovered/Resolved]
  - Pre-existing condition improved [Unknown]
  - Dysphagia [Unknown]
  - Blood potassium increased [Unknown]
  - Gastroenteritis viral [Recovering/Resolving]
  - Vomiting [Not Recovered/Not Resolved]

NARRATIVE: CASE EVENT DATE: 20211201
